FAERS Safety Report 19104755 (Version 5)
Quarter: 2025Q2

REPORT INFORMATION
  Report Type: Spontaneous
  Country: PK (occurrence: PK)
  Receive Date: 20210408
  Receipt Date: 20250624
  Transmission Date: 20250716
  Serious: Yes (Other)
  Sender: AMGEN
  Company Number: PK-PFIZER INC-2021346710

PATIENT
  Age: 51 Year
  Sex: Male

DRUGS (11)
  1. ENBREL [Suspect]
     Active Substance: ETANERCEPT
     Indication: Psoriatic arthropathy
     Dosage: 50 MILLIGRAM, QWK
     Route: 058
  2. ENBREL [Suspect]
     Active Substance: ETANERCEPT
     Indication: Rheumatoid arthritis
     Dosage: 50 MG, ONCE A WEEK
     Route: 058
     Dates: start: 20210422
  3. Cara [Concomitant]
  4. Cara [Concomitant]
     Dosage: 10 MILLIGRAM, QD
  5. Distalgesic [Concomitant]
     Indication: Pain
     Dosage: 1+0+1
     Route: 065
  6. Seacal [Concomitant]
     Dosage: UNK, 2X/DAY 1+0+1
     Route: 065
  7. DELTACORTRIL [Concomitant]
     Active Substance: PREDNISOLONE
     Dosage: 5 MG, 1X/DAY (1+0+0)
     Route: 065
  8. Risek [Concomitant]
     Indication: Gastrointestinal disorder
     Dosage: 20 MG, 1X/DAY (1+0+0)
     Route: 065
  9. DICLOFENAC SODIUM [Concomitant]
     Active Substance: DICLOFENAC SODIUM
  10. Cac [Concomitant]
     Dosage: UNK, 1X/DAY
     Route: 065
  11. Noberol Forte [Concomitant]

REACTIONS (4)
  - Psoriatic arthropathy [Unknown]
  - Glycosylated haemoglobin abnormal [Unknown]
  - Hypertension [Unknown]
  - Pyrexia [Unknown]
